FAERS Safety Report 18009047 (Version 1)
Quarter: 2020Q3

REPORT INFORMATION
  Report Type: Spontaneous
  Country: US (occurrence: US)
  Receive Date: 20200710
  Receipt Date: 20200710
  Transmission Date: 20201103
  Serious: No
  Sender: FDA-Public Use
  Company Number: US-SAOL THERAPEUTICS-2020SAO00030

PATIENT
  Sex: Female
  Weight: 83.9 kg

DRUGS (2)
  1. TIZANADINE [Concomitant]
     Active Substance: TIZANIDINE
  2. LIORESAL [Suspect]
     Active Substance: BACLOFEN
     Dosage: 398 ?G, \DAY
     Route: 037

REACTIONS (2)
  - Skin ulcer [Not Recovered/Not Resolved]
  - Impaired healing [Not Recovered/Not Resolved]
